FAERS Safety Report 22881609 (Version 2)
Quarter: 2024Q3

REPORT INFORMATION
  Report Type: Spontaneous
  Country: US (occurrence: US)
  Receive Date: 20230830
  Receipt Date: 20240826
  Transmission Date: 20241017
  Serious: No
  Sender: CIPLA
  Company Number: US-CIPLA LTD.-2023US03566

PATIENT

DRUGS (13)
  1. MELOXICAM [Suspect]
     Active Substance: MELOXICAM
     Indication: Joint injury
     Dosage: 1 TABLET- 15 MG, DAILY WITH FOOD AS NEEDED
     Route: 048
     Dates: start: 20230621
  2. GABAPENTIN [Concomitant]
     Active Substance: GABAPENTIN
     Indication: Neuralgia
     Dosage: 800 MG/1 TABLET THRICE DAILY
     Route: 065
     Dates: start: 2007
  3. TOPIRAMATE [Concomitant]
     Active Substance: TOPIRAMATE
     Indication: Anxiety
     Dosage: 100 MG (50 MG/2 TABLETS), TWICE DAILY
     Route: 065
     Dates: start: 2019
  4. ATENOLOL [Concomitant]
     Active Substance: ATENOLOL
     Indication: Hypertension
     Dosage: 50 MG/1 TABLET BY MOUTH EVERY DAY
     Route: 048
  5. ATENOLOL [Concomitant]
     Active Substance: ATENOLOL
     Indication: Anxiety
  6. ALBUTEROL [Concomitant]
     Active Substance: ALBUTEROL
     Indication: Asthma
     Dosage: 90 MCG/AS NEEDED
     Route: 065
     Dates: start: 2000
  7. MOMETASONE FUROATE [Concomitant]
     Active Substance: MOMETASONE FUROATE
     Indication: Nasal discomfort
     Dosage: 50 MCG/2 SPRAYS IN EACH NOSTRIL PER DAY
     Route: 045
  8. HYDROCHLOROTHIAZIDE\LOSARTAN [Concomitant]
     Active Substance: HYDROCHLOROTHIAZIDE\LOSARTAN
     Indication: Hypertension
     Dosage: 50-12.5 MG TABLET, UNK
     Route: 065
     Dates: start: 2000
  9. TRULICITY [Concomitant]
     Active Substance: DULAGLUTIDE
     Indication: Diabetes mellitus
     Dosage: 3 MG/0.5 ML/ONCE A WEEK
     Route: 065
     Dates: start: 20230621
  10. TIZANIDINE [Concomitant]
     Active Substance: TIZANIDINE
     Indication: Sleep disorder
     Dosage: 4 MG/1 TABLET DAILY AT NIGHT
     Route: 065
  11. TIZANIDINE [Concomitant]
     Active Substance: TIZANIDINE
     Indication: Muscle spasms
  12. CYMBALTA [Concomitant]
     Active Substance: DULOXETINE HYDROCHLORIDE
     Indication: Neuralgia
     Dosage: 30 MG/3 TIMES A DAY
     Route: 065
     Dates: start: 2000
  13. CYMBALTA [Concomitant]
     Active Substance: DULOXETINE HYDROCHLORIDE
     Indication: Anxiety

REACTIONS (3)
  - Off label use [Unknown]
  - Rash erythematous [Not Recovered/Not Resolved]
  - Pruritus [Not Recovered/Not Resolved]

NARRATIVE: CASE EVENT DATE: 20230621
